FAERS Safety Report 14842235 (Version 2)
Quarter: 2019Q2

REPORT INFORMATION
  Report Type: Report from Study
  Country: US (occurrence: US)
  Receive Date: 20180503
  Receipt Date: 20190424
  Transmission Date: 20190711
  Serious: Yes (Other)
  Sender: FDA-Public Use
  Company Number: PHEH2018US015737

PATIENT
  Sex: Male

DRUGS (1)
  1. ENTRESTO [Suspect]
     Active Substance: SACUBITRIL\VALSARTAN
     Indication: PRODUCT USED FOR UNKNOWN INDICATION
     Dosage: UNK UNK, QD
     Route: 048

REACTIONS (10)
  - Heart valve incompetence [Unknown]
  - Pulmonary thrombosis [Unknown]
  - Hypoaesthesia [Unknown]
  - Coagulopathy [Unknown]
  - Cardiac failure [Unknown]
  - Thrombosis [Unknown]
  - Chills [Unknown]
  - Feeling cold [Unknown]
  - Pulmonary congestion [Unknown]
  - Drug ineffective [Unknown]
